FAERS Safety Report 8638843 (Version 2)
Quarter: 2013Q2

REPORT INFORMATION
  Report Type: Report from Study
  Country: BE (occurrence: BE)
  Receive Date: 20120627
  Receipt Date: 20130608
  Transmission Date: 20140414
  Serious: Yes (Hospitalization)
  Sender: FDA-Public Use
  Company Number: BE-TEVA-345101USA

PATIENT
  Age: 70 Year
  Sex: Female
  Weight: 57 kg

DRUGS (8)
  1. BENDAMUSTINE [Suspect]
     Dosage: UID/QD
     Route: 042
     Dates: start: 20120524, end: 20120525
  2. BENDAMUSTINE [Suspect]
     Dosage: UID/QD
     Route: 042
     Dates: start: 20120621
  3. BISOPROLOL [Concomitant]
     Indication: OEDEMA
     Dosage: 5 MILLIGRAM DAILY;
     Route: 048
     Dates: start: 20130320
  4. FLUCONAZOLE [Concomitant]
     Indication: INFECTION PROPHYLAXIS
     Route: 048
     Dates: start: 20130320
  5. ACICLOVIR [Concomitant]
     Indication: INFECTION PROPHYLAXIS
     Dosage: 800 MILLIGRAM DAILY;
     Dates: start: 20130217
  6. FOLAVIT [Concomitant]
     Indication: CHEMOTHERAPY
     Dosage: 4 MILLIGRAM DAILY;
     Route: 048
     Dates: start: 20130224
  7. LASIX [Concomitant]
     Indication: OEDEMA
     Dosage: 40 MILLIGRAM DAILY;
     Route: 048
     Dates: start: 20130320
  8. BUMETANIDE [Concomitant]
     Indication: OEDEMA
     Dosage: 5 MILLIGRAM DAILY;
     Route: 048
     Dates: start: 20120621, end: 20120621

REACTIONS (1)
  - Pulmonary oedema [Recovered/Resolved]
